FAERS Safety Report 16392613 (Version 2)
Quarter: 2019Q3

REPORT INFORMATION
  Report Type: Spontaneous
  Country: US (occurrence: US)
  Receive Date: 20190605
  Receipt Date: 20190906
  Transmission Date: 20191004
  Serious: Yes (Hospitalization, Other)
  Sender: FDA-Public Use
  Company Number: US-ASTRAZENECA-2018SF66230

PATIENT
  Age: 50 Year
  Sex: Male

DRUGS (56)
  1. NEXIUM [Suspect]
     Active Substance: ESOMEPRAZOLE MAGNESIUM
     Route: 048
  2. PROTONIX [Suspect]
     Active Substance: PANTOPRAZOLE SODIUM
     Route: 065
  3. FUROSEMIDE. [Concomitant]
     Active Substance: FUROSEMIDE
  4. PROMETHAZINE [Concomitant]
     Active Substance: PROMETHAZINE HYDROCHLORIDE
  5. AMLODIPINE BESYLATE. [Concomitant]
     Active Substance: AMLODIPINE BESYLATE
  6. CYCLOBENZAPRINE. [Concomitant]
     Active Substance: CYCLOBENZAPRINE
  7. SERTRALINE [Concomitant]
     Active Substance: SERTRALINE HYDROCHLORIDE
  8. ISOSORBIDE DINITRATE. [Concomitant]
     Active Substance: ISOSORBIDE DINITRATE
  9. ATENOLOL. [Concomitant]
     Active Substance: ATENOLOL
  10. ASPIRIN. [Concomitant]
     Active Substance: ASPIRIN
  11. ALKA-SELTZER [Concomitant]
     Active Substance: ANHYDROUS CITRIC ACID\ASPIRIN\SODIUM BICARBONATE
  12. CRESTOR [Concomitant]
     Active Substance: ROSUVASTATIN CALCIUM
  13. ELIQUIS [Concomitant]
     Active Substance: APIXABAN
  14. IRBESARTAN. [Concomitant]
     Active Substance: IRBESARTAN
  15. DOXAZOSIN [Concomitant]
     Active Substance: DOXAZOSIN MESYLATE
  16. COLCRYS [Concomitant]
     Active Substance: COLCHICINE
  17. PEPTO-BISMOL [Concomitant]
     Active Substance: BISMUTH SUBSALICYLATE
  18. NEXIUM [Suspect]
     Active Substance: ESOMEPRAZOLE MAGNESIUM
     Route: 048
     Dates: start: 20150311
  19. PROTONIX [Suspect]
     Active Substance: PANTOPRAZOLE SODIUM
     Dosage: GENERIC
     Route: 065
  20. FUROSEMIDE. [Concomitant]
     Active Substance: FUROSEMIDE
  21. GABAPENTIN. [Concomitant]
     Active Substance: GABAPENTIN
  22. DILTIAZM [Concomitant]
  23. TORESMIDE [Concomitant]
  24. LOSARTAN. [Concomitant]
     Active Substance: LOSARTAN
  25. LANTUS SOLOSTAR [Concomitant]
     Active Substance: INSULIN GLARGINE
  26. TRIAMTERENE. [Concomitant]
     Active Substance: TRIAMTERENE
  27. CITALOPRAM [Concomitant]
     Active Substance: CITALOPRAM HYDROBROMIDE
  28. AZITHROMYCIN ANHYDROUS. [Concomitant]
     Active Substance: AZITHROMYCIN ANHYDROUS
  29. LIDOCAINE. [Concomitant]
     Active Substance: LIDOCAINE
  30. LABETALOL [Concomitant]
     Active Substance: LABETALOL\LABETALOL HYDROCHLORIDE
  31. HUMALOG [Concomitant]
     Active Substance: INSULIN LISPRO
  32. JANUMET [Concomitant]
     Active Substance: METFORMIN HYDROCHLORIDE\SITAGLIPTIN PHOSPHATE
  33. PRILOSEC [Suspect]
     Active Substance: OMEPRAZOLE MAGNESIUM
     Route: 048
  34. DEXILANT [Suspect]
     Active Substance: DEXLANSOPRAZOLE
     Route: 065
     Dates: start: 2012
  35. HYDRALAZINE [Concomitant]
     Active Substance: HYDRALAZINE HYDROCHLORIDE
  36. FLUTICASONE. [Concomitant]
     Active Substance: FLUTICASONE
  37. CHLORTHALIDON [Concomitant]
  38. NOVOLOG [Concomitant]
     Active Substance: INSULIN ASPART
  39. NEXIUM [Suspect]
     Active Substance: ESOMEPRAZOLE MAGNESIUM
     Route: 048
     Dates: start: 19890901, end: 20171231
  40. IRBESARTAN. [Concomitant]
     Active Substance: IRBESARTAN
  41. FORXIGA [Concomitant]
     Active Substance: DAPAGLIFLOZIN
  42. LISINOPRIL. [Concomitant]
     Active Substance: LISINOPRIL
  43. LOSARTAN. [Concomitant]
     Active Substance: LOSARTAN
  44. TRAZODONE [Concomitant]
     Active Substance: TRAZODONE HYDROCHLORIDE
  45. OXYCODONE [Concomitant]
     Active Substance: OXYCODONE
  46. PREVACID [Suspect]
     Active Substance: LANSOPRAZOLE
     Route: 065
     Dates: start: 2002
  47. FLOMAX [Concomitant]
     Active Substance: TAMSULOSIN HYDROCHLORIDE
  48. SERTRALINE [Concomitant]
     Active Substance: SERTRALINE HYDROCHLORIDE
  49. AMOX-CLAV [Concomitant]
     Active Substance: AMOXICILLIN\CLAVULANATE POTASSIUM
  50. HYDROCODONE [Concomitant]
     Active Substance: HYDROCODONE
  51. CARVEDILOL. [Concomitant]
     Active Substance: CARVEDILOL
  52. TAMSULOSIN [Concomitant]
     Active Substance: TAMSULOSIN
  53. SPIRONOLACTON [Concomitant]
     Active Substance: SPIRONOLACTONE
  54. CEPHALEXIN. [Concomitant]
     Active Substance: CEPHALEXIN
  55. CIPROFLOXACIN. [Concomitant]
     Active Substance: CIPROFLOXACIN
  56. METFORMIN [Concomitant]
     Active Substance: METFORMIN HYDROCHLORIDE

REACTIONS (5)
  - Chronic kidney disease [Not Recovered/Not Resolved]
  - Renal failure [Unknown]
  - Rebound acid hypersecretion [Unknown]
  - Acute kidney injury [Unknown]
  - Nephropathy [Unknown]

NARRATIVE: CASE EVENT DATE: 2005
